FAERS Safety Report 10789922 (Version 2)
Quarter: 2015Q1

REPORT INFORMATION
  Report Type: Spontaneous
  Country: FR (occurrence: FR)
  Receive Date: 20150212
  Receipt Date: 20150213
  Transmission Date: 20150721
  Serious: Yes (Hospitalization)
  Sender: FDA-Public Use
  Company Number: FR-SA-2015SA014485

PATIENT
  Age: 73 Year
  Sex: Male

DRUGS (10)
  1. SEROPLEX [Concomitant]
     Active Substance: ESCITALOPRAM OXALATE
     Dosage: LONG-STANDING TREATMENT, STRENGTH: 10 MG
     Route: 048
     Dates: end: 20141017
  2. FORLAX [Concomitant]
     Active Substance: POLYETHYLENE GLYCOL 4000
     Route: 048
     Dates: end: 20141017
  3. COAPROVEL [Suspect]
     Active Substance: HYDROCHLOROTHIAZIDE\IRBESARTAN
     Indication: HYPERTENSION
     Route: 048
     Dates: end: 20141017
  4. JANUVIA [Suspect]
     Active Substance: SITAGLIPTIN PHOSPHATE
     Route: 048
     Dates: end: 20141017
  5. STILNOX [Concomitant]
     Active Substance: ZOLPIDEM TARTRATE
     Dosage: LONG-STANDING TREATMENT, STRENGTH: 10 MG
     Route: 048
  6. SERESTA [Concomitant]
     Active Substance: OXAZEPAM
     Dosage: LONG-STANDING TREATMENT, STRENGTH: 10 MG
     Route: 048
     Dates: end: 20141017
  7. AMLOR [Concomitant]
     Active Substance: AMLODIPINE BESYLATE
     Dosage: LONG-STANDING TREATMENT, STRENGTH:5 MG
     Route: 048
  8. GLUCOPHAGE [Suspect]
     Active Substance: METFORMIN HYDROCHLORIDE
     Indication: TYPE 2 DIABETES MELLITUS
     Route: 048
     Dates: end: 20141017
  9. INEXIUM [Concomitant]
     Active Substance: ESOMEPRAZOLE
     Dosage: LONG-STANDING TREATMENT, STRENGTH: 20 MG
     Route: 048
  10. TOBREX [Concomitant]
     Active Substance: TOBRAMYCIN
     Dosage: IN LEFT EYE, LONG-STANDING TREATMENT
     Route: 031
     Dates: end: 20141017

REACTIONS (3)
  - Renal failure [Recovered/Resolved]
  - Hyperkalaemia [Recovered/Resolved]
  - Lactic acidosis [Recovered/Resolved]

NARRATIVE: CASE EVENT DATE: 20141017
